FAERS Safety Report 9431901 (Version 1)
Quarter: 2013Q3

REPORT INFORMATION
  Report Type: Spontaneous
  Country: BR (occurrence: BR)
  Receive Date: 20130731
  Receipt Date: 20130731
  Transmission Date: 20140515
  Serious: Yes (Hospitalization, Other)
  Sender: FDA-Public Use
  Company Number: PHHY2013BR080837

PATIENT
  Age: 86 Year
  Sex: Male
  Weight: 58 kg

DRUGS (10)
  1. ONBREZ [Suspect]
     Indication: DYSPNOEA
     Dosage: 150 UG, BID
     Dates: start: 201305
  2. ONBREZ [Suspect]
     Indication: OFF LABEL USE
  3. EXELON PATCH [Suspect]
     Indication: DEMENTIA ALZHEIMER^S TYPE
     Dosage: PATCH 10 (CM2), DAILY DOSE 9.5 MG
     Route: 062
     Dates: start: 201306
  4. RECONTER [Concomitant]
     Indication: DEPRESSION
     Dosage: 1 DF, QD
     Route: 048
  5. TAPAZOL [Concomitant]
     Indication: HYPERTENSION
     Dosage: 10 MG, QD
     Route: 048
  6. PRESSAT [Concomitant]
     Indication: HYPERTENSION
     Dosage: 10 MG, QD
     Route: 048
  7. AAS [Concomitant]
     Indication: PERIPHERAL VASCULAR DISORDER
     Dosage: 100 MG, QD
     Route: 048
     Dates: start: 1998
  8. PANTOPRAZOLE [Concomitant]
     Indication: PROPHYLAXIS
     Dosage: 20 MG, QD
     Route: 048
     Dates: start: 201306
  9. ARADOIS [Concomitant]
     Indication: HYPERTENSION
     Dosage: 50 MG, QD
     Route: 048
  10. LASIX [Concomitant]
     Indication: RENAL FAILURE
     Dosage: 0.5 DF, QD
     Route: 048

REACTIONS (6)
  - Pulmonary fibrosis [Not Recovered/Not Resolved]
  - Dyspnoea [Not Recovered/Not Resolved]
  - Asthenia [Not Recovered/Not Resolved]
  - Weight decreased [Not Recovered/Not Resolved]
  - Pyrexia [Recovered/Resolved]
  - Inappropriate schedule of drug administration [Unknown]
